FAERS Safety Report 7557314-6 (Version None)
Quarter: 2011Q2

REPORT INFORMATION
  Report Type: 
  Country: None (occurrence: None)
  Receive Date: 20110620
  Receipt Date: 20090226
  Transmission Date: 20111010
  Serious: Yes (Death, Hospitalization, Other)
  Sender: FDA-Public Use
  Company Number: PHMT2005CA00819

PATIENT
  Sex: Male

DRUGS (9)
  1. SANDOSTATIN LAR [Suspect]
     Indication: CARCINOID SYNDROME
     Dosage: 20 MG, EVERY 4 WEEKS
     Dates: start: 20040928
  2. SANDOSTATIN LAR [Suspect]
     Dosage: 60 MG, QMO
     Route: 030
     Dates: end: 20090202
  3. SANDOSTATIN LAR [Suspect]
     Dosage: 40 MG IM, EVERY 4 WEEKS
  4. SANDOSTATIN LAR [Suspect]
     Dosage: 50 MG, EVERY 4 WEEKS
  5. CHEMOTHERAPEUTICS,OTHER [Concomitant]
     Dates: start: 20060501
  6. SANDOSTATIN LAR [Suspect]
     Dosage: 30 MG, EVERY 4 WEEKS
  7. CHEMOTHERAPEUTICS,OTHER [Concomitant]
     Dosage: ANOTHER CYCLE
     Dates: start: 20061115
  8. DIOVAN [Suspect]
  9. SANDOSTATIN LAR [Suspect]
     Dosage: 20 MG, UNK
     Dates: start: 20060508

REACTIONS (8)
  - BLOOD PRESSURE INCREASED [None]
  - DIARRHOEA [None]
  - FLUSHING [None]
  - NAUSEA [None]
  - CONDITION AGGRAVATED [None]
  - CARCINOID SYNDROME [None]
  - ABDOMINAL DISTENSION [None]
  - FATIGUE [None]
